FAERS Safety Report 7201764-4 (Version None)
Quarter: 2010Q4

REPORT INFORMATION
  Report Type: 
  Country: None (occurrence: None)
  Receive Date: 20101229
  Receipt Date: 20101222
  Transmission Date: 20110411
  Serious: Yes (Other)
  Sender: FDA-Public Use
  Company Number: CA-ROCHE-750430

PATIENT
  Sex: Female

DRUGS (1)
  1. BEVACIZUMAB [Suspect]
     Indication: CONGENITAL MUSCULOSKELETAL ANOMALY
     Dosage: FORM: INFUSION
     Route: 042
     Dates: start: 20100914

REACTIONS (5)
  - DYSGEUSIA [None]
  - FUNGAL INFECTION [None]
  - HEADACHE [None]
  - OROPHARYNGEAL PAIN [None]
  - ROAD TRAFFIC ACCIDENT [None]
